FAERS Safety Report 22354778 (Version 1)
Quarter: 2023Q2

REPORT INFORMATION
  Report Type: Report from Study
  Country: US (occurrence: US)
  Receive Date: 20230523
  Receipt Date: 20230523
  Transmission Date: 20230721
  Serious: Yes (Death)
  Sender: FDA-Public Use
  Company Number: US-ABBVIE-5175973

PATIENT
  Sex: Female
  Weight: 58.966 kg

DRUGS (1)
  1. CREON [Suspect]
     Active Substance: PANCRELIPASE AMYLASE\PANCRELIPASE LIPASE\PANCRELIPASE PROTEASE
     Indication: Pancreatic carcinoma
     Route: 048
     Dates: start: 20230414, end: 20230518

REACTIONS (4)
  - Pancreatic carcinoma [Fatal]
  - Hypophagia [Unknown]
  - Fluid intake reduced [Unknown]
  - Product use complaint [Unknown]
